FAERS Safety Report 15361575 (Version 1)
Quarter: 2018Q3

REPORT INFORMATION
  Report Type: Spontaneous
  Country: US (occurrence: US)
  Receive Date: 20180831
  Receipt Date: 20180831
  Transmission Date: 20181010
  Serious: No
  Sender: FDA-Public Use
  Company Number: None

PATIENT
  Age: 49 Year
  Sex: Male

DRUGS (1)
  1. HUMIRA [Suspect]
     Active Substance: ADALIMUMAB
     Indication: CROHN^S DISEASE
     Route: 058
     Dates: start: 20170714

REACTIONS (5)
  - Inflammation [None]
  - Abdominal pain lower [None]
  - Frequent bowel movements [None]
  - Drug effect decreased [None]
  - Gallbladder disorder [None]

NARRATIVE: CASE EVENT DATE: 20180801
